FAERS Safety Report 10717817 (Version 1)
Quarter: 2015Q1

REPORT INFORMATION
  Report Type: Spontaneous
  Country: AR (occurrence: AR)
  Receive Date: 20150116
  Receipt Date: 20150116
  Transmission Date: 20150721
  Serious: Yes (Congenital Anomaly, Other)
  Sender: FDA-Public Use
  Company Number: AR-ROXANE LABORATORIES, INC.-2015-RO-00044RO

PATIENT
  Age: 1 Day
  Sex: Female
  Weight: 2 kg

DRUGS (7)
  1. AMLODIPINE [Suspect]
     Active Substance: AMLODIPINE BESYLATE
     Indication: FOETAL EXPOSURE DURING PREGNANCY
     Route: 064
  2. MYCOPHENOLATE MOFETIL. [Suspect]
     Active Substance: MYCOPHENOLATE MOFETIL
     Indication: FOETAL EXPOSURE DURING PREGNANCY
     Route: 064
  3. ENALAPRIL [Suspect]
     Active Substance: ENALAPRIL
     Indication: FOETAL EXPOSURE DURING PREGNANCY
     Route: 064
  4. TACROLIMUS. [Suspect]
     Active Substance: TACROLIMUS
     Indication: FOETAL EXPOSURE DURING PREGNANCY
     Route: 064
  5. MEPREDNISONE [Suspect]
     Active Substance: MEPREDNISONE
     Indication: FOETAL EXPOSURE DURING PREGNANCY
     Route: 064
  6. ERYTHROPOIETIN [Suspect]
     Active Substance: ERYTHROPOIETIN
     Indication: FOETAL EXPOSURE DURING PREGNANCY
     Route: 064
  7. DILTIAZEM [Suspect]
     Active Substance: DILTIAZEM
     Indication: FOETAL EXPOSURE DURING PREGNANCY
     Route: 064

REACTIONS (7)
  - Facial asymmetry [Unknown]
  - Maternal drugs affecting foetus [None]
  - Premature baby [Unknown]
  - Oesophageal atresia [Unknown]
  - Low birth weight baby [Unknown]
  - Atrial septal defect [Unknown]
  - Anomaly of external ear congenital [Unknown]
